FAERS Safety Report 9338944 (Version 3)
Quarter: 2013Q4

REPORT INFORMATION
  Report Type: Spontaneous
  Country: US (occurrence: US)
  Receive Date: 20130610
  Receipt Date: 20131211
  Transmission Date: 20140711
  Serious: Yes (Other)
  Sender: FDA-Public Use
  Company Number: US-PFIZER INC-2013173351

PATIENT
  Age: 57 Year
  Sex: Female
  Weight: 109 kg

DRUGS (3)
  1. LYRICA [Suspect]
     Indication: FIBROMYALGIA
     Dosage: 150 MG, 3X/DAY
     Route: 048
     Dates: end: 2013
  2. LYRICA [Suspect]
     Dosage: UNK
  3. GABAPENTIN [Concomitant]
     Dosage: 300 MG, 1X/DAY

REACTIONS (4)
  - Fibromyalgia [Unknown]
  - Neuropathy peripheral [Unknown]
  - Irritability [Unknown]
  - Pain [Unknown]
